FAERS Safety Report 19051097 (Version 1)
Quarter: 2021Q1

REPORT INFORMATION
  Report Type: Spontaneous
  Country: US (occurrence: US)
  Receive Date: 20210324
  Receipt Date: 20210324
  Transmission Date: 20210420
  Serious: Yes (Hospitalization)
  Sender: FDA-Public Use
  Company Number: None

PATIENT
  Age: 68 Year
  Sex: Male

DRUGS (8)
  1. INLYTA [Suspect]
     Active Substance: AXITINIB
     Indication: RENAL CELL CARCINOMA
     Route: 048
     Dates: start: 20201001, end: 20201023
  2. LOSARTAN 25 MG [Concomitant]
     Active Substance: LOSARTAN
     Dates: start: 20201002
  3. SERTRALINE 50 MG [Concomitant]
     Active Substance: SERTRALINE HYDROCHLORIDE
     Dates: start: 20201002
  4. ASPIRIN 81 MG [Concomitant]
     Active Substance: ASPIRIN
     Dates: start: 20201002
  5. ZETIA 10 MG [Concomitant]
     Dates: start: 20201002
  6. PRAVASATIN 20 MG [Concomitant]
     Dates: start: 20201002
  7. BASAGLAR [Concomitant]
     Active Substance: INSULIN GLARGINE
     Dates: start: 20201002
  8. VASCEPA 1GM [Concomitant]
     Dates: start: 20201002

REACTIONS (1)
  - Seizure [None]

NARRATIVE: CASE EVENT DATE: 20201023
